FAERS Safety Report 19169002 (Version 1)
Quarter: 2021Q2

REPORT INFORMATION
  Report Type: Spontaneous
  Country: US (occurrence: US)
  Receive Date: 20210421
  Receipt Date: 20210421
  Transmission Date: 20210717
  Serious: Yes (Life-Threatening, Hospitalization)
  Sender: FDA-Public Use
  Company Number: None

PATIENT
  Age: 60 Year
  Sex: Female
  Weight: 90 kg

DRUGS (2)
  1. BAMLANIVIMAB 700 MG / ETESEVIMAB 1400 MG IN 160ML NS BAG [Suspect]
     Active Substance: BAMLANIVIMAB\ETESEVIMAB
     Indication: COVID-19
     Route: 041
     Dates: start: 20210415, end: 20210415
  2. BAMLANIVIMAB 700 MG / ETESEVIMAB 1400 MG IN 160ML NS BAG [Suspect]
     Active Substance: BAMLANIVIMAB\ETESEVIMAB
     Indication: COVID-19
     Route: 041
     Dates: start: 20210415, end: 20210415

REACTIONS (4)
  - Streptococcal infection [None]
  - Dyspnoea [None]
  - Dysphagia [None]
  - Pyrexia [None]

NARRATIVE: CASE EVENT DATE: 20210415
